FAERS Safety Report 22123125 (Version 1)
Quarter: 2023Q1

REPORT INFORMATION
  Report Type: Spontaneous
  Country: US (occurrence: US)
  Receive Date: 20230322
  Receipt Date: 20230322
  Transmission Date: 20230417
  Serious: No
  Sender: FDA-Public Use
  Company Number: US-ABBVIE-4303248

PATIENT
  Sex: Female

DRUGS (1)
  1. SKYRIZI [Suspect]
     Active Substance: RISANKIZUMAB-RZAA
     Indication: Psoriasis
     Dosage: STRENGTH-150 MG
     Route: 058

REACTIONS (4)
  - Trichorrhexis [Unknown]
  - Alopecia [Unknown]
  - Vitamin D decreased [Unknown]
  - Heavy menstrual bleeding [Unknown]
